FAERS Safety Report 19569561 (Version 1)
Quarter: 2021Q3

REPORT INFORMATION
  Report Type: Spontaneous
  Country: IT (occurrence: IT)
  Receive Date: 20210716
  Receipt Date: 20210716
  Transmission Date: 20211014
  Serious: Yes (Life-Threatening, Hospitalization, Other)
  Sender: FDA-Public Use
  Company Number: IT-GLAXOSMITHKLINE-CHNY2009IT02094

PATIENT
  Age: 5 Year
  Sex: Female

DRUGS (14)
  1. PARACETAMOL [Suspect]
     Active Substance: ACETAMINOPHEN
     Indication: PYREXIA
     Dosage: 11 MG/KG/DOSE, TOTAL OF 2 DOSES OVER 5H
     Route: 048
  2. IBUPROFEN. [Suspect]
     Active Substance: IBUPROFEN
     Indication: FEBRILE INFECTION
     Dosage: UNK
     Route: 065
  3. IBUPROFEN. [Suspect]
     Active Substance: IBUPROFEN
     Indication: HYPERPYREXIA
     Dosage: 5 MG/KG, QD (5 MG/KG/DOSE EVERY 8 H ( THREE TOTAL DOSES; IN AN ALTERNATING REGIMEN WITH PARACETAMOL)
     Route: 048
  4. ORAL REHYDRATION SALT [Concomitant]
     Indication: DEHYDRATION
     Dosage: UNK
     Route: 048
  5. ACETAMINOPHEN. [Suspect]
     Active Substance: ACETAMINOPHEN
     Indication: PYREXIA
     Dosage: 11 MG/KG/DOSE, TWO TOTAL DOSES OVER 5 H (1ST DAY); AS OF 2ND DAY IN ALTERNATE REGIMEN WITH IBUPROFEN
     Route: 048
  6. ACETAMINOPHEN. [Suspect]
     Active Substance: ACETAMINOPHEN
     Indication: FEBRILE INFECTION
     Dosage: UNK
     Route: 065
  7. CEFTRIAXONE. [Concomitant]
     Active Substance: CEFTRIAXONE
     Indication: FEBRILE CONVULSION
     Dosage: UNK
     Route: 065
  8. PARACETAMOL [Suspect]
     Active Substance: ACETAMINOPHEN
     Indication: ANALGESIC INTERVENTION SUPPORTIVE THERAPY
     Dosage: UNK
     Route: 065
  9. DIAZEPAM. [Suspect]
     Active Substance: DIAZEPAM
     Dosage: UNK
     Route: 065
  10. IBUPROFEN. [Suspect]
     Active Substance: IBUPROFEN
     Indication: PYREXIA
     Dosage: 5 MG/KG, TID
     Route: 048
  11. ACETAMINOPHEN. [Suspect]
     Active Substance: ACETAMINOPHEN
     Indication: SEIZURE PROPHYLAXIS
     Dosage: UNK
     Route: 065
  12. IBUPROFEN. [Suspect]
     Active Substance: IBUPROFEN
     Indication: ANALGESIC INTERVENTION SUPPORTIVE THERAPY
     Dosage: UNK
     Route: 065
  13. DIAZEPAM. [Suspect]
     Active Substance: DIAZEPAM
     Indication: FEBRILE CONVULSION
     Dosage: UNK
     Route: 054
  14. CEFTRIAXONE. [Concomitant]
     Active Substance: CEFTRIAXONE
     Dosage: UNK
     Route: 065

REACTIONS (25)
  - Hepatic enzyme increased [Recovered/Resolved]
  - Blood creatinine increased [Recovered/Resolved]
  - Base excess [Recovered/Resolved]
  - Platelet count increased [Recovered/Resolved]
  - Hypertension [Recovered/Resolved]
  - Kidney enlargement [Recovered/Resolved]
  - Tubulointerstitial nephritis [Unknown]
  - Protein urine present [Unknown]
  - Acute hepatic failure [Recovered/Resolved]
  - Blood sodium decreased [Recovered/Resolved]
  - Blood fibrinogen increased [Unknown]
  - Blood ketone body [Unknown]
  - Acute kidney injury [Recovered/Resolved]
  - Gamma-glutamyltransferase increased [Recovered/Resolved]
  - Hepatic failure [Unknown]
  - Drug interaction [Recovered/Resolved]
  - Alpha 1 microglobulin increased [Recovered/Resolved]
  - C-reactive protein increased [Recovered/Resolved]
  - Blood albumin decreased [Recovered/Resolved]
  - Fibrin D dimer increased [Recovered/Resolved]
  - Hepatitis cholestatic [Recovered/Resolved]
  - Renal impairment [Recovered/Resolved]
  - Red blood cell sedimentation rate increased [Recovered/Resolved]
  - Blood urea increased [Recovered/Resolved]
  - Blood immunoglobulin G increased [Recovered/Resolved]
